FAERS Safety Report 5518901-X (Version None)
Quarter: 2007Q4

REPORT INFORMATION
  Report Type: 
  Country: None (occurrence: None)
  Receive Date: 20071114
  Receipt Date: 20071104
  Transmission Date: 20080405
  Serious: Yes (Other)
  Sender: FDA-Public Use
  Company Number: 2007SP022366

PATIENT
  Age: 54 Year
  Sex: Male
  Weight: 94.8018 kg

DRUGS (2)
  1. PEG-INTRON [Suspect]
     Indication: HEPATITIS C
     Dosage: SC
     Route: 058
     Dates: start: 20070829, end: 20071003
  2. RIBAVIRIN [Suspect]
     Indication: HEPATITIS C
     Dosage: PO
     Route: 048
     Dates: start: 20070829, end: 20071003

REACTIONS (7)
  - BRONCHITIS [None]
  - DEPRESSION [None]
  - DYSGEUSIA [None]
  - ORAL INTAKE REDUCED [None]
  - PAIN [None]
  - PULMONARY OEDEMA [None]
  - WEIGHT DECREASED [None]
